FAERS Safety Report 15075013 (Version 2)
Quarter: 2023Q4

REPORT INFORMATION
  Report Type: Spontaneous
  Country: US (occurrence: US)
  Receive Date: 20180627
  Receipt Date: 20231109
  Transmission Date: 20240110
  Serious: Yes (Hospitalization, Other)
  Sender: FDA-Public Use
  Company Number: US-SAOL THERAPEUTICS-2017SAO01568

PATIENT
  Age: 48 Year
  Sex: Male

DRUGS (12)
  1. LIORESAL [Suspect]
     Active Substance: BACLOFEN
     Indication: Muscle spasticity
     Dosage: UNK
     Route: 037
     Dates: start: 2011
  2. LIORESAL [Suspect]
     Active Substance: BACLOFEN
     Indication: Brain injury
     Dosage: 1272 ?G, \DAY
     Route: 037
  3. LIORESAL [Suspect]
     Active Substance: BACLOFEN
     Dosage: 1272.8 ?G, \DAY
     Route: 037
  4. AMANTADINE [Concomitant]
     Active Substance: AMANTADINE
  5. BROMOCRIPTINE [Concomitant]
     Active Substance: BROMOCRIPTINE
  6. FLOMAX [Concomitant]
     Active Substance: TAMSULOSIN HYDROCHLORIDE
  7. PROBIOTICS NOS [Concomitant]
     Active Substance: PROBIOTICS NOS
  8. FISH OIL [Concomitant]
     Active Substance: FISH OIL
  9. MELATONIN [Concomitant]
     Active Substance: MELATONIN
  10. ZINC [Concomitant]
     Active Substance: PYRITHIONE ZINC\ZINC\ZINC CHLORIDE
  11. MAGNESIUM [Concomitant]
     Active Substance: MAGNESIUM
  12. ASPIRIN [Concomitant]
     Active Substance: ASPIRIN

REACTIONS (4)
  - Drug withdrawal syndrome [Unknown]
  - Malaise [Unknown]
  - Device failure [Recovered/Resolved]
  - Device alarm issue [Recovered/Resolved]

NARRATIVE: CASE EVENT DATE: 20170920
